FAERS Safety Report 8746205 (Version 1)
Quarter: 2012Q4

REPORT INFORMATION
  Report Type: 
  Country: CA (occurrence: CA)
  Receive Date: 20120828
  Receipt Date: 20120828
  Transmission Date: 20130627
  Serious: Yes (Other)
  Sender: FDA-Public Use
  Company Number: CA-JNJFOC-20120810129

PATIENT
  Sex: Female
  Weight: 44 kg

DRUGS (4)
  1. TYLENOL ARTHRITIS PAIN [Suspect]
     Route: 048
  2. TYLENOL ARTHRITIS PAIN [Suspect]
     Indication: HIP ARTHROPLASTY
     Dosage: 1 caplet, twice a day
     Route: 048
     Dates: start: 2010
  3. SYNTHROID [Concomitant]
     Indication: THYROID DISORDER
     Dosage: since years
     Route: 065
  4. VITAMIN D NOS [Concomitant]
     Indication: ROUTINE HEALTH MAINTENANCE
     Route: 065

REACTIONS (10)
  - Angioedema [Recovered/Resolved]
  - Ear disorder [Recovered/Resolved]
  - Muscle spasms [Recovered/Resolved]
  - Gastritis [Recovered/Resolved]
  - Back pain [Recovered/Resolved]
  - Wheezing [Recovered/Resolved]
  - Enzyme abnormality [Recovered/Resolved]
  - Intentional drug misuse [Recovered/Resolved]
  - Expired drug administered [Unknown]
  - Urticaria [Recovered/Resolved]
